FAERS Safety Report 6820215-2 (Version None)
Quarter: 2010Q3

REPORT INFORMATION
  Report Type: 
  Country: None (occurrence: None)
  Receive Date: 20100707
  Receipt Date: 20100628
  Transmission Date: 20110219
  Serious: Yes (Hospitalization, Disabling)
  Sender: FDA-Public Use
  Company Number: FR-PFIZER INC-2010079983

PATIENT
  Age: 76 Year
  Sex: Female

DRUGS (7)
  1. TAHOR [Suspect]
     Dosage: UNK
     Route: 048
     Dates: start: 20020101, end: 20100130
  2. METHOTREXATE SODIUM [Suspect]
     Dosage: 12.5 MG, WEEKLY
     Route: 048
     Dates: start: 20090201, end: 20100130
  3. TAREG [Concomitant]
     Indication: HYPERTENSION
     Dosage: 80 MG, DAILY
     Route: 048
     Dates: start: 20020101, end: 20100130
  4. KARDEGIC [Concomitant]
     Dosage: 75 MG, DAILY
     Route: 048
     Dates: start: 20020101
  5. INSULIN DETEMIR (LEVEMIR) [Concomitant]
     Dosage: 28 IU, DAILY
     Route: 058
  6. NOVORAPID [Concomitant]
     Dosage: 30 IU, DAILY
     Route: 058
  7. SECTRAL [Concomitant]
     Indication: HYPERTENSION
     Dosage: 200 MG, DAILY
     Route: 048
     Dates: start: 20020101

REACTIONS (1)
  - PULMONARY FIBROSIS [None]
